FAERS Safety Report 10034441 (Version 3)
Quarter: 2014Q2

REPORT INFORMATION
  Report Type: Spontaneous
  Country: US (occurrence: None)
  Receive Date: 20140321
  Receipt Date: 20140519
  Transmission Date: 20141212
  Serious: Yes (Hospitalization)
  Sender: FDA-Public Use
  Company Number: UTC-045878

PATIENT
  Age: 26 Year
  Sex: Female
  Weight: 65.77 kg

DRUGS (4)
  1. REMODULIN [Suspect]
     Indication: PULMONARY ARTERIAL HYPERTENSION
     Dosage: 72UG/KG (0.05UG/KG 1 IN 1MIN) SUBCUTANEOUS
     Route: 058
     Dates: start: 20130115
  2. REVATIO [Concomitant]
  3. WARFARIN (WARFARIN) [Concomitant]
  4. LETAIRIS (AMBRISENTAN) (TABLETS) [Concomitant]

REACTIONS (3)
  - Syncope [None]
  - Drug dose omission [None]
  - Device malfunction [None]
